FAERS Safety Report 8365954-X (Version None)
Quarter: 2012Q2

REPORT INFORMATION
  Report Type: 
  Country: None (occurrence: None)
  Receive Date: 20120517
  Receipt Date: 20120514
  Transmission Date: 20120825
  Serious: Yes (Other)
  Sender: FDA-Public Use
  Company Number: US-PFIZER INC-2012117211

PATIENT
  Sex: Male
  Weight: 109 kg

DRUGS (13)
  1. VITAMIN B COMPLEX CAP [Concomitant]
     Dosage: UNK
  2. LYRICA [Suspect]
     Indication: NEUROPATHY PERIPHERAL
     Dosage: 100 MG, 3X/DAY
     Dates: end: 20120501
  3. NOVOLIN R [Concomitant]
     Dosage: 5/10 MG, 2X/DAY
  4. LOVAZA [Concomitant]
     Dosage: UNK, 2X/DAY
  5. ACETYLSALICYLIC ACID [Concomitant]
     Dosage: UNK, DAILY
  6. ENALAPRIL [Concomitant]
     Dosage: 20 MG, 2X/DAY
  7. INSULIN DETEMIR [Concomitant]
     Dosage: 55 IU, 1X/DAY
  8. JANUVIA [Concomitant]
     Dosage: UNK
  9. GLYBURIDE [Concomitant]
     Dosage: 5 MG, DAILY
  10. HUMULIN N [Concomitant]
     Dosage: UNK
  11. METOPROLOL [Concomitant]
     Dosage: 100 MG, 2X/DAY
  12. HYDRALAZINE [Concomitant]
     Dosage: 50 MG, 1X/DAY
  13. LIPITOR [Concomitant]
     Indication: BLOOD CHOLESTEROL ABNORMAL
     Dosage: 40 MG, 1X/DAY

REACTIONS (6)
  - RESTLESS LEGS SYNDROME [None]
  - INSOMNIA [None]
  - MUSCLE SPASMS [None]
  - PARAESTHESIA [None]
  - HYPOAESTHESIA [None]
  - FEELING ABNORMAL [None]
